FAERS Safety Report 13120730 (Version 1)
Quarter: 2017Q1

REPORT INFORMATION
  Report Type: Report from Study
  Country: CA (occurrence: CA)
  Receive Date: 20170117
  Receipt Date: 20170117
  Transmission Date: 20170428
  Serious: Yes (Hospitalization)
  Sender: FDA-Public Use
  Company Number: PHHY2014CA167865

PATIENT
  Age: 58 Year
  Sex: Male

DRUGS (3)
  1. SANDOSTATIN LAR DEPOT [Suspect]
     Active Substance: OCTREOTIDE ACETATE
     Dosage: 40 MG, QMO (ONCE A MONTH)
     Route: 030
     Dates: end: 20160210
  2. SANDOSTATIN LAR DEPOT [Suspect]
     Active Substance: OCTREOTIDE ACETATE
     Indication: PANCREATIC CARCINOMA METASTATIC
     Dosage: 20 MG, QMO (ONCE A MONTH)
     Route: 030
     Dates: start: 20141114
  3. SANDOSTATIN LAR DEPOT [Suspect]
     Active Substance: OCTREOTIDE ACETATE
     Dosage: 60 MG, QMO (ONCE A MONTH)
     Route: 030
     Dates: start: 20160309, end: 20161214

REACTIONS (18)
  - Nausea [Unknown]
  - Abdominal pain [Unknown]
  - Rash [Not Recovered/Not Resolved]
  - Heart valve incompetence [Unknown]
  - Weight decreased [Unknown]
  - Decreased appetite [Unknown]
  - Rash pruritic [Unknown]
  - Rash macular [Unknown]
  - Blood pressure diastolic increased [Unknown]
  - Eating disorder [Unknown]
  - Malaise [Unknown]
  - Heart rate increased [Unknown]
  - Blood pressure systolic increased [Unknown]
  - Fatigue [Unknown]
  - Increased appetite [Unknown]
  - Pain [Unknown]
  - Blood pressure increased [Unknown]
  - Body temperature decreased [Unknown]

NARRATIVE: CASE EVENT DATE: 2014
